FAERS Safety Report 5728238-1 (Version None)
Quarter: 2008Q2

REPORT INFORMATION
  Report Type: 
  Country: None (occurrence: None)
  Receive Date: 20080502
  Receipt Date: 20080502
  Transmission Date: 20081010
  Serious: Yes (Death)
  Sender: FDA-Public Use
  Company Number: None

PATIENT
  Sex: Male
  Weight: 83.0083 kg

DRUGS (1)
  1. DIGITEK   0.125MG   MYLAN BERTEK [Suspect]
     Indication: SICK SINUS SYNDROME
     Dosage: 1 PILL DAILY PO
     Route: 048
     Dates: start: 20061223, end: 20080218

REACTIONS (1)
  - CARDIAC ARREST [None]
